FAERS Safety Report 7948450-0 (Version None)
Quarter: 2011Q4

REPORT INFORMATION
  Report Type: 
  Country: None (occurrence: None)
  Receive Date: 20111125
  Receipt Date: 20111110
  Transmission Date: 20120403
  Serious: Yes (Other)
  Sender: FDA-Public Use
  Company Number: DE-DEXPHARM-20111714

PATIENT
  Sex: Male

DRUGS (1)
  1. CHLORHEXIDINE (CHLORHEXAMED 0,2%) ACTIVE SUBSTANCES: CHLORHEXIDINE [Suspect]
     Indication: PERIODONTITIS
     Dosage: DAILY DOSE: 20 ML MILLILITER9S) EVERY DAY, DOSE: 10 ML MILLILITER(S), SEP DOSAGES/INTERVAL: 2 IN 1 D
     Route: 004

REACTIONS (2)
  - DYSPNOEA [None]
  - ARRHYTHMIA [None]
